FAERS Safety Report 20801331 (Version 1)
Quarter: 2022Q2

REPORT INFORMATION
  Report Type: Spontaneous
  Country: DE (occurrence: DE)
  Receive Date: 20220509
  Receipt Date: 20220509
  Transmission Date: 20220721
  Serious: Yes (Hospitalization)
  Sender: FDA-Public Use
  Company Number: DE-ALKEM LABORATORIES LIMITED-DE-ALKEM-2022-01008

PATIENT
  Age: 48 Year
  Sex: Female

DRUGS (1)
  1. PREGABALIN [Suspect]
     Active Substance: PREGABALIN
     Indication: Neuralgia
     Dosage: 150 MILLIGRAM
     Route: 065
     Dates: start: 2009

REACTIONS (4)
  - Paraesthesia [Unknown]
  - Condition aggravated [Unknown]
  - Neuralgia [Unknown]
  - Hand deformity [Unknown]
